FAERS Safety Report 5519924-7 (Version None)
Quarter: 2007Q4

REPORT INFORMATION
  Report Type: 
  Country: None (occurrence: None)
  Receive Date: 20071116
  Receipt Date: 20071106
  Transmission Date: 20080405
  Serious: Yes (Other)
  Sender: FDA-Public Use
  Company Number: GB-ABBOTT-07P-167-0423714-00

PATIENT
  Age: 45 Year
  Sex: Female
  Weight: 85.4 kg

DRUGS (1)
  1. HUMIRA [Suspect]
     Indication: DRUG USE FOR UNKNOWN INDICATION
     Dates: start: 20070901, end: 20071025

REACTIONS (5)
  - ABDOMINAL PAIN [None]
  - DIZZINESS [None]
  - INSOMNIA [None]
  - MENORRHAGIA [None]
  - RASH [None]
